FAERS Safety Report 7537813-3 (Version None)
Quarter: 2011Q2

REPORT INFORMATION
  Report Type: 
  Country: None (occurrence: None)
  Receive Date: 20110609
  Receipt Date: 20110601
  Transmission Date: 20111010
  Serious: Yes (Hospitalization)
  Sender: FDA-Public Use
  Company Number: AT-CEPHALON-2011002877

PATIENT
  Sex: Female

DRUGS (2)
  1. BENDAMUSTINE HCL [Suspect]
     Route: 042
  2. RITUXIMAB [Suspect]

REACTIONS (1)
  - HOSPITALISATION [None]
